APPROVED DRUG PRODUCT: SODIUM PERTECHNETATE TC 99M
Active Ingredient: TECHNETIUM TC-99M SODIUM PERTECHNETATE
Strength: 12mCi/ML
Dosage Form/Route: SOLUTION;INJECTION, ORAL
Application: N017321 | Product #001
Applicant: SUN PHARMACEUTICAL INDUSTRIES INC
Approved: Approved Prior to Jan 1, 1982 | RLD: No | RS: No | Type: DISCN